FAERS Safety Report 4277366-9 (Version None)
Quarter: 2004Q1

REPORT INFORMATION
  Report Type: 
  Country: None (occurrence: None)
  Receive Date: 20040121
  Receipt Date: 20040109
  Transmission Date: 20041129
  Serious: Yes (Death, Hospitalization)
  Sender: FDA-Public Use
  Company Number: KDL051681

PATIENT
  Age: 86 Year
  Sex: Male

DRUGS (1)
  1. EPOGEN [Suspect]
     Indication: RENAL FAILURE CHRONIC
     Dosage: 10000 U, WEEKLY
     Dates: start: 20031003, end: 20031010

REACTIONS (3)
  - ASPIRATION [None]
  - CARDIAC FAILURE CONGESTIVE [None]
  - VOMITING [None]
